FAERS Safety Report 18344497 (Version 2)
Quarter: 2022Q3

REPORT INFORMATION
  Report Type: Report from Study
  Country: JP (occurrence: JP)
  Receive Date: 20201005
  Receipt Date: 20220721
  Transmission Date: 20221027
  Serious: Yes (Hospitalization)
  Sender: FDA-Public Use
  Company Number: JP-SAKK-2019SA322971AA

PATIENT
  Age: 74 Year
  Sex: Female
  Weight: 49 kg

DRUGS (29)
  1. ISATUXIMAB [Suspect]
     Active Substance: ISATUXIMAB
     Indication: Plasma cell myeloma
     Dosage: 10 MG/KG, DAY1, 15 (28 DAYS FOR 1 CYCLE)
     Route: 041
     Dates: start: 20180622, end: 20191108
  2. ISATUXIMAB [Suspect]
     Active Substance: ISATUXIMAB
     Dosage: 468 MG, 1X
     Route: 041
     Dates: start: 20191203, end: 20191203
  3. ISATUXIMAB [Suspect]
     Active Substance: ISATUXIMAB
     Dosage: 468 MG
     Route: 041
     Dates: start: 20191217, end: 20191217
  4. BORTEZOMIB [Suspect]
     Active Substance: BORTEZOMIB
     Indication: Plasma cell myeloma
     Dosage: 1.3 MG/M2, DAY1, 4, 8, 11, 22, 25, 29. 32 (42 DAYS FOR 1 CYCLE)
     Route: 058
     Dates: start: 20180622, end: 20181211
  5. LENALIDOMIDE [Suspect]
     Active Substance: LENALIDOMIDE
     Indication: Plasma cell myeloma
     Dosage: 25 MG, QD (DAY1-21 [28 DAYS FOR 1 CYCLE])
     Route: 048
     Dates: start: 20180622
  6. LENALIDOMIDE [Suspect]
     Active Substance: LENALIDOMIDE
     Dosage: 20 MG PER DAY
     Route: 048
     Dates: start: 20191203, end: 20191216
  7. LENALIDOMIDE [Suspect]
     Active Substance: LENALIDOMIDE
     Dosage: 20 MG PER DAY
     Route: 048
     Dates: start: 20191217, end: 20191223
  8. LENALIDOMIDE [Suspect]
     Active Substance: LENALIDOMIDE
     Dosage: 25 MG/DAY
     Route: 048
     Dates: start: 20181012, end: 20181015
  9. LENALIDOMIDE [Suspect]
     Active Substance: LENALIDOMIDE
     Dosage: 25 MG/DAY
     Route: 048
     Dates: start: 20181109, end: 20181122
  10. LENALIDOMIDE [Suspect]
     Active Substance: LENALIDOMIDE
     Dosage: 25 MG/DAY
     Route: 048
     Dates: start: 20181130, end: 20181213
  11. DEXAMETHASONE [Suspect]
     Active Substance: DEXAMETHASONE
     Indication: Plasma cell myeloma
     Dosage: 20 MG, QD (DAY1, 8, 15, 22 [28 DAYS FOR 1 CYCLE])
     Route: 042
     Dates: start: 20180622, end: 20191112
  12. DEXAMETHASONE [Suspect]
     Active Substance: DEXAMETHASONE
     Dosage: 12 MG PER DAY
     Route: 042
     Dates: start: 20191203
  13. DEXAMETHASONE [Suspect]
     Active Substance: DEXAMETHASONE
     Dosage: 12 MG PER DAY
     Route: 048
     Dates: start: 20191210
  14. DEXAMETHASONE [Suspect]
     Active Substance: DEXAMETHASONE
     Dosage: 12 MG PER DAY
     Route: 042
     Dates: start: 20191217
  15. DEXAMETHASONE [Suspect]
     Active Substance: DEXAMETHASONE
     Dosage: 12 MG PER DAY
     Route: 048
     Dates: start: 20191224
  16. AMLODIPINE BESYLATE [Concomitant]
     Active Substance: AMLODIPINE BESYLATE
     Indication: Hypertension
     Dosage: 5 MG, QD
     Route: 048
     Dates: start: 2006
  17. NITRAZEPAM [Concomitant]
     Active Substance: NITRAZEPAM
     Indication: Insomnia
     Dosage: 5 MG AS NEEDED
     Route: 048
  18. ACYCLOVIR [Concomitant]
     Active Substance: ACYCLOVIR
     Indication: Infection prophylaxis
     Dosage: 200 MG, QD
     Route: 048
     Dates: start: 20180622
  19. ASPIRIN [Concomitant]
     Active Substance: ASPIRIN
     Indication: Prophylaxis of nausea and vomiting
     Dosage: 100 MG, QD
     Route: 048
     Dates: start: 20140622
  20. REBAMIPIDE [Concomitant]
     Active Substance: REBAMIPIDE
     Indication: Gastritis prophylaxis
     Dosage: 100 MG, TID
     Route: 048
     Dates: start: 20190706
  21. MAGNESIUM OXIDE [Concomitant]
     Active Substance: MAGNESIUM OXIDE
     Indication: Constipation
     Dosage: 330 MG AS NEEDED
     Route: 048
     Dates: start: 20180623
  22. ASPIRIN [Concomitant]
     Active Substance: ASPIRIN
     Indication: Prophylaxis
     Dosage: UNK
     Route: 048
     Dates: start: 20181024, end: 20191112
  23. ASPIRIN [Concomitant]
     Active Substance: ASPIRIN
     Dosage: UNK
     Route: 048
     Dates: start: 20191121
  24. VONOPRAZAN FUMARATE [Concomitant]
     Active Substance: VONOPRAZAN FUMARATE
     Indication: Product used for unknown indication
     Dosage: UNK
     Route: 048
     Dates: start: 20190623
  25. DEXCHLORPHENIRAMINE MALEATE [Concomitant]
     Active Substance: DEXCHLORPHENIRAMINE MALEATE
     Indication: Prophylaxis
     Dosage: 5 MG, QOW
     Route: 042
     Dates: start: 20190816, end: 20191025
  26. DEXCHLORPHENIRAMINE MALEATE [Concomitant]
     Active Substance: DEXCHLORPHENIRAMINE MALEATE
     Dosage: 50 MG, 1X
     Route: 042
     Dates: start: 20191108, end: 20191108
  27. DEXCHLORPHENIRAMINE MALEATE [Concomitant]
     Active Substance: DEXCHLORPHENIRAMINE MALEATE
     Dosage: 5 MG, 1X
     Route: 042
     Dates: start: 20191203, end: 20191203
  28. ACETAMINOPHEN [Concomitant]
     Active Substance: ACETAMINOPHEN
     Indication: Prophylaxis
     Dosage: 800 MG, QOW
     Route: 048
     Dates: start: 20190816, end: 20191108
  29. ACETAMINOPHEN [Concomitant]
     Active Substance: ACETAMINOPHEN
     Dosage: 800 MG, 1X
     Route: 048
     Dates: start: 20191203, end: 20191203

REACTIONS (1)
  - Interstitial lung disease [Recovered/Resolved]

NARRATIVE: CASE EVENT DATE: 20191108
